FAERS Safety Report 8659721 (Version 2)
Quarter: 2012Q4

REPORT INFORMATION
  Report Type: 
  Country: BR (occurrence: BR)
  Receive Date: 20120711
  Receipt Date: 20120914
  Transmission Date: 20130627
  Serious: Yes (Hospitalization)
  Sender: FDA-Public Use
  Company Number: BR-SANOFI-AVENTIS-2012SA047243

PATIENT
  Age: 12 Year
  Sex: Female
  Weight: 48 kg

DRUGS (5)
  1. LANTUS [Suspect]
     Indication: TYPE 1 DIABETES MELLITUS
     Route: 058
     Dates: start: 2008
  2. LANTUS [Suspect]
     Indication: TYPE 1 DIABETES MELLITUS
     Route: 058
  3. LANTUS [Suspect]
     Indication: TYPE 1 DIABETES MELLITUS
     Route: 058
     Dates: start: 2012
  4. CLIKSTAR [Suspect]
     Indication: DEVICE THERAPY
     Dates: start: 2008
  5. HUMALOG [Concomitant]
     Indication: TYPE I DIABETES MELLITUS
     Route: 058
     Dates: start: 2002

REACTIONS (4)
  - Vomiting [Recovered/Resolved]
  - Blood ketone body increased [Recovered/Resolved]
  - Hyperglycaemia [Recovered/Resolved]
  - Drug ineffective [Unknown]
